FAERS Safety Report 5265900-1 (Version None)
Quarter: 2007Q1

REPORT INFORMATION
  Report Type: 
  Country: None (occurrence: None)
  Receive Date: 20070315
  Receipt Date: 20070301
  Transmission Date: 20070707
  Serious: Yes (Hospitalization, Other)
  Sender: FDA-Public Use
  Company Number: PHHO2007JP04204

PATIENT
  Age: 80 Year
  Sex: Male
  Weight: 62 kg

DRUGS (3)
  1. DIOVAN [Suspect]
     Dosage: 40 MG, BID
     Route: 048
     Dates: start: 20030218, end: 20061212
  2. DOPS [Concomitant]
     Indication: PARKINSON'S DISEASE
     Dates: start: 20031216, end: 20061212
  3. TICLOPIDINE HCL [Concomitant]
     Indication: CEREBRAL INFARCTION
     Dates: start: 20060328, end: 20061031

REACTIONS (9)
  - BLOOD CREATINE PHOSPHOKINASE INCREASED [None]
  - CEREBRAL INFARCTION [None]
  - CONVULSION [None]
  - DEMENTIA [None]
  - DEPRESSED LEVEL OF CONSCIOUSNESS [None]
  - HEMIPARESIS [None]
  - HEMIPLEGIA [None]
  - RHABDOMYOLYSIS [None]
  - VISUAL DISTURBANCE [None]
